FAERS Safety Report 13500491 (Version 1)
Quarter: 2017Q2

REPORT INFORMATION
  Report Type: Spontaneous
  Country: US (occurrence: US)
  Receive Date: 20170501
  Receipt Date: 20170501
  Transmission Date: 20170830
  Serious: No
  Sender: FDA-Public Use
  Company Number: US-AKRIMAX-TIR-2017-0316

PATIENT
  Age: 66 Year
  Sex: Female
  Weight: 71.28 kg

DRUGS (3)
  1. TIROSINT [Suspect]
     Active Substance: LEVOTHYROXINE SODIUM
     Indication: THYROIDECTOMY
     Dosage: ONE 100MCG CAPSULE AND ONE 13MCG CAPSULE DAILY
     Route: 048
     Dates: start: 201607
  2. TIROSINT [Suspect]
     Active Substance: LEVOTHYROXINE SODIUM
     Indication: THYROIDECTOMY
     Dosage: ONE 112MCG CAPSULE DAILY
     Route: 048
  3. TIROSINT [Suspect]
     Active Substance: LEVOTHYROXINE SODIUM
     Indication: THYROIDECTOMY
     Dosage: ONE 100MCG CAPSULE AND ONE 13MCG CAPSULE DAILY
     Route: 048
     Dates: start: 201607

REACTIONS (3)
  - Malaise [Unknown]
  - Weight loss poor [Unknown]
  - Weight decreased [Unknown]

NARRATIVE: CASE EVENT DATE: 201701
